FAERS Safety Report 16837634 (Version 1)
Quarter: 2019Q3

REPORT INFORMATION
  Report Type: Spontaneous
  Country: ES (occurrence: ES)
  Receive Date: 20190923
  Receipt Date: 20190923
  Transmission Date: 20191005
  Serious: Yes (Other)
  Sender: FDA-Public Use
  Company Number: ES-TEVA-2019-ES-1110848

PATIENT
  Age: 85 Year
  Sex: Male
  Weight: 80 kg

DRUGS (3)
  1. ROMILAR 15 MG/5 ML JARABE , 1 FRASCO DE 200 ML [Concomitant]
     Indication: UPPER RESPIRATORY TRACT INFECTION
     Dosage: 15 MILLIGRAM EVERY 8 HOURS
     Route: 048
     Dates: start: 20190722, end: 20190803
  2. CINFAMUCOL CARBOCISTEINA 50 MG/ML SOLUCION ORAL , 1 FRASCO DE 200 ML [Concomitant]
     Indication: UPPER RESPIRATORY TRACT INFECTION
     Dosage: 1 GRAM EVERY 8 HOURS
     Route: 048
     Dates: start: 20190722, end: 20190803
  3. LEVOFLOXACINO (2791A) [Suspect]
     Active Substance: LEVOFLOXACIN
     Indication: RESPIRATORY TRACT INFECTION
     Dosage: 500 MILLIGRAM EVERY 12 HOURS
     Route: 048
     Dates: start: 20190722, end: 20190728

REACTIONS (1)
  - Myopathy [Recovering/Resolving]

NARRATIVE: CASE EVENT DATE: 20190727
